FAERS Safety Report 18679265 (Version 6)
Quarter: 2021Q4

REPORT INFORMATION
  Report Type: Spontaneous
  Country: US (occurrence: US)
  Receive Date: 20201229
  Receipt Date: 20211004
  Transmission Date: 20220303
  Serious: No
  Sender: FDA-Public Use
  Company Number: US-PFIZER INC-2020513041

PATIENT
  Age: 62 Year
  Sex: Female

DRUGS (4)
  1. XELJANZ XR [Suspect]
     Active Substance: TOFACITINIB CITRATE
     Indication: Rheumatoid arthritis
     Dosage: 11 MG, 1X/DAY (DAILY)
     Route: 048
     Dates: start: 202012, end: 20210725
  2. XELJANZ XR [Suspect]
     Active Substance: TOFACITINIB CITRATE
     Dosage: 11 MG, 1X/DAY (DAILY)
     Route: 048
     Dates: start: 20210802, end: 20210825
  3. PREDNISONE [Concomitant]
     Active Substance: PREDNISONE
     Dosage: UNK
  4. MELOXICAM [Concomitant]
     Active Substance: MELOXICAM
     Dosage: UNK

REACTIONS (9)
  - Therapeutic product effect incomplete [Unknown]
  - Product dose omission issue [Unknown]
  - Cough [Recovered/Resolved]
  - Peripheral swelling [Recovering/Resolving]
  - Arthralgia [Unknown]
  - Asthenia [Unknown]
  - Hepatic enzyme abnormal [Unknown]
  - Pain in extremity [Unknown]
  - Renal disorder [Unknown]
